FAERS Safety Report 6321221-7 (Version None)
Quarter: 2009Q3

REPORT INFORMATION
  Report Type: 
  Country: None (occurrence: None)
  Receive Date: 20090822
  Receipt Date: 20090106
  Transmission Date: 20100115
  Serious: No
  Sender: FDA-Public Use
  Company Number: US-ABBOTT-09P-163-0496136-00

PATIENT
  Sex: Male

DRUGS (10)
  1. NIASPAN [Suspect]
     Indication: HIGH DENSITY LIPOPROTEIN DECREASED
     Route: 048
     Dates: start: 20081230
  2. NIASPAN [Suspect]
     Indication: HYPERCHOLESTEROLAEMIA
  3. ASPIRIN [Concomitant]
     Indication: DRUG USE FOR UNKNOWN INDICATION
  4. ZETIA [Concomitant]
     Indication: DRUG USE FOR UNKNOWN INDICATION
  5. GEMFIBROZIL [Concomitant]
     Indication: DRUG USE FOR UNKNOWN INDICATION
  6. GLIPIZIDE [Concomitant]
     Indication: DRUG USE FOR UNKNOWN INDICATION
  7. GLUCOPHAGE [Concomitant]
     Indication: DRUG USE FOR UNKNOWN INDICATION
  8. FLOMAX [Concomitant]
     Indication: DRUG USE FOR UNKNOWN INDICATION
  9. PROSCAR [Concomitant]
     Indication: DRUG USE FOR UNKNOWN INDICATION
  10. TRICOR [Concomitant]
     Indication: DRUG USE FOR UNKNOWN INDICATION

REACTIONS (1)
  - INSOMNIA [None]
